FAERS Safety Report 8186890-8 (Version None)
Quarter: 2012Q1

REPORT INFORMATION
  Report Type: 
  Country: None (occurrence: None)
  Receive Date: 20120213
  Receipt Date: 20111014
  Transmission Date: 20120608
  Serious: No
  Sender: FDA-Public Use
  Company Number: 1000024726

PATIENT
  Age: 64 Year
  Sex: Female

DRUGS (11)
  1. TOPAMAX [Concomitant]
  2. PERCOCET (OXYCODONE, ACETAMIINOPHEN) [Concomitant]
  3. NITROFURANTOIN [Concomitant]
  4. SAVELLA [Suspect]
     Indication: FIBROMYALGIA
     Dosage: 12.5;25;50;100  MG (12.525;50; MG, 1 IN 1 D), ORAL
     Route: 048
     Dates: start: 20110921, end: 20110922
  5. SAVELLA [Suspect]
     Indication: FIBROMYALGIA
     Dosage: 12.5;25;50;100  MG (12.525;50; MG, 1 IN 1 D), ORAL
     Route: 048
     Dates: start: 20110923, end: 20110926
  6. SAVELLA [Suspect]
     Indication: FIBROMYALGIA
     Dosage: 12.5;25;50;100  MG (12.525;50; MG, 1 IN 1 D), ORAL
     Route: 048
     Dates: start: 20110927
  7. SAVELLA [Suspect]
     Indication: FIBROMYALGIA
     Dosage: 12.5;25;50;100  MG (12.525;50; MG, 1 IN 1 D), ORAL
     Route: 048
     Dates: start: 20110920, end: 20110920
  8. SYNTHROID [Concomitant]
  9. METOPROLOL TARTRATE [Concomitant]
  10. ALBUTEROL [Concomitant]
  11. LISINOPRIL [Concomitant]

REACTIONS (2)
  - PHOTOPSIA [None]
  - FUNGAL INFECTION [None]
